FAERS Safety Report 5413322-2 (Version None)
Quarter: 2007Q3

REPORT INFORMATION
  Report Type: 
  Country: None (occurrence: None)
  Receive Date: 20070814
  Receipt Date: 20070803
  Transmission Date: 20080115
  Serious: Yes (Hospitalization)
  Sender: FDA-Public Use
  Company Number: AU-NOVOPROD-266201

PATIENT
  Age: 12 Year
  Weight: 38 kg

DRUGS (6)
  1. NORDITROPIN [Suspect]
     Indication: BODY HEIGHT BELOW NORMAL
     Dosage: 1.4 MG, QD
     Route: 058
  2. AZATHIOPRINE [Concomitant]
     Dosage: 50 MG, QD
     Route: 048
     Dates: start: 20070512
  3. PREDNISOLONE [Concomitant]
     Dosage: 5 MG, QD
     Route: 048
     Dates: start: 20070512
  4. TACROLIMUS [Concomitant]
     Dosage: 12 UNK, QD
     Route: 048
     Dates: start: 20070512
  5. ISOTRETINOIN [Concomitant]
     Dosage: 10 MG, QD
     Route: 048
     Dates: start: 20051006
  6. ENALAPRIL MALEATE [Concomitant]
     Dosage: 5 MG, QD
     Route: 048
     Dates: start: 20051208

REACTIONS (2)
  - DIARRHOEA [None]
  - VOMITING [None]
